FAERS Safety Report 15763184 (Version 1)
Quarter: 2018Q4

REPORT INFORMATION
  Report Type: Spontaneous
  Country: US (occurrence: US)
  Receive Date: 20181226
  Receipt Date: 20181226
  Transmission Date: 20190205
  Serious: No
  Sender: FDA-Public Use
  Company Number: US-ASTRAZENECA-2018SF43582

PATIENT
  Age: 76 Year
  Sex: Female

DRUGS (1)
  1. BYDUREON [Suspect]
     Active Substance: EXENATIDE
     Indication: TYPE 2 DIABETES MELLITUS
     Route: 058
     Dates: start: 20170308, end: 20181017

REACTIONS (4)
  - Injection site nodule [Recovered/Resolved]
  - Injection site pain [Recovered/Resolved]
  - Underdose [Unknown]
  - Device leakage [Unknown]
